FAERS Safety Report 23442817 (Version 1)
Quarter: 2024Q1

REPORT INFORMATION
  Report Type: Spontaneous
  Country: US (occurrence: None)
  Receive Date: 20240124
  Receipt Date: 20240124
  Transmission Date: 20240410
  Serious: Yes (Other)
  Sender: FDA-Public Use
  Company Number: None

PATIENT
  Age: 69 Year
  Sex: Female

DRUGS (1)
  1. CLOFAZIMINE [Suspect]
     Active Substance: CLOFAZIMINE
     Indication: Mycobacterium avium complex infection
     Dates: start: 20230101, end: 20230701

REACTIONS (4)
  - Liver injury [None]
  - Hepatic enzyme increased [None]
  - Hepatic cancer [None]
  - Therapy cessation [None]

NARRATIVE: CASE EVENT DATE: 20240123
